FAERS Safety Report 5006327-7 (Version None)
Quarter: 2006Q2

REPORT INFORMATION
  Report Type: 
  Country: None (occurrence: None)
  Receive Date: 20060519
  Receipt Date: 20051228
  Transmission Date: 20061013
  Serious: Yes (Other)
  Sender: FDA-Public Use
  Company Number: JP-BRISTOL-MYERS SQUIBB COMPANY-13260559

PATIENT
  Age: 42 Year
  Sex: Male

DRUGS (6)
  1. BRIPLATIN [Suspect]
     Indication: HYPOPHARYNGEAL CANCER
     Route: 041
     Dates: start: 20050211, end: 20050211
  2. TAXOTERE [Suspect]
     Indication: HYPOPHARYNGEAL CANCER
     Route: 013
     Dates: start: 20050210, end: 20050210
  3. FLUOROURACIL [Suspect]
     Indication: HYPOPHARYNGEAL CANCER
     Route: 041
     Dates: start: 20050211, end: 20050215
  4. MIRACLID [Concomitant]
     Route: 041
     Dates: start: 20050210, end: 20050210
  5. HYDROCORTONE [Concomitant]
     Indication: PREMEDICATION
     Route: 013
     Dates: start: 20050210, end: 20050210
  6. ZOFRAN [Concomitant]
     Indication: PREMEDICATION
     Route: 041
     Dates: start: 20050211, end: 20050211

REACTIONS (1)
  - LARYNGOPHARYNGITIS [None]
